FAERS Safety Report 6336160-5 (Version None)
Quarter: 2009Q3

REPORT INFORMATION
  Report Type: 
  Country: None (occurrence: None)
  Receive Date: 20090831
  Receipt Date: 20090831
  Transmission Date: 20100115
  Serious: No
  Sender: FDA-Public Use
  Company Number: None

PATIENT
  Age: 85 Year
  Sex: Male

DRUGS (2)
  1. AMIODARONE HCL [Suspect]
     Dosage: 150MG BOLUS-DRIP AS ABOVE IV CONTINUOUS
     Route: 042
     Dates: start: 20090820, end: 20090821
  2. CORDARONE [Suspect]
     Dosage: 400MG BID ORAL (PO)
     Route: 048
     Dates: start: 20090820, end: 20090821

REACTIONS (1)
  - LIVER FUNCTION TEST ABNORMAL [None]
